FAERS Safety Report 23856472 (Version 3)
Quarter: 2024Q3

REPORT INFORMATION
  Report Type: Spontaneous
  Country: US (occurrence: None)
  Receive Date: 20240515
  Receipt Date: 20240709
  Transmission Date: 20241017
  Serious: No
  Sender: ASTRAZENECA
  Company Number: 2024A104723

PATIENT
  Sex: Male

DRUGS (2)
  1. BYDUREON BCISE [Suspect]
     Active Substance: EXENATIDE
     Indication: Type 2 diabetes mellitus
  2. INSULIN NOS [Concomitant]
     Active Substance: INSULIN NOS
     Dosage: TWO INSULIN SHOT PER DAY

REACTIONS (6)
  - Injection site mass [Unknown]
  - Feeling abnormal [Unknown]
  - Injection site pain [Unknown]
  - Drug dose omission by device [Unknown]
  - Extra dose administered [Unknown]
  - Device delivery system issue [Unknown]
